FAERS Safety Report 6060684-1 (Version None)
Quarter: 2009Q1

REPORT INFORMATION
  Report Type: 
  Country: None (occurrence: None)
  Receive Date: 20090202
  Receipt Date: 20090121
  Transmission Date: 20090719
  Serious: Yes (Other)
  Sender: FDA-Public Use
  Company Number: DE-PFIZER INC-2009159674

PATIENT

DRUGS (1)
  1. AROMASIN [Suspect]
     Indication: BREAST CANCER RECURRENT
     Dosage: 25 MG, 1X/DAY
     Route: 048
     Dates: start: 20071201

REACTIONS (2)
  - OCULAR NEOPLASM [None]
  - RETINAL HAEMORRHAGE [None]
